FAERS Safety Report 5263853-3 (Version None)
Quarter: 2007Q1

REPORT INFORMATION
  Report Type: 
  Country: None (occurrence: None)
  Receive Date: 20061213
  Receipt Date: 20040326
  Transmission Date: 20070707
  Serious: Yes (Other)
  Sender: FDA-Public Use
  Company Number: 2004UW05983

PATIENT
  Age: 69 Year
  Sex: Male

DRUGS (7)
  1. IRESSA [Suspect]
     Dosage: 250 MG PO
     Route: 048
     Dates: start: 20040318
  2. ZOLOFT [Concomitant]
  3. XANAX [Concomitant]
  4. AMBIEN [Concomitant]
  5. LOPERAMIDE HCL [Concomitant]
  6. TYLENOL [Concomitant]
  7. ROXANOL [Concomitant]

REACTIONS (1)
  - DYSPEPSIA [None]
